FAERS Safety Report 16094269 (Version 1)
Quarter: 2019Q1

REPORT INFORMATION
  Report Type: Spontaneous
  Country: NL (occurrence: NL)
  Receive Date: 20190320
  Receipt Date: 20190320
  Transmission Date: 20190418
  Serious: Yes (Hospitalization)
  Sender: FDA-Public Use
  Company Number: NL-ACCORD-114464

PATIENT
  Age: 70 Year
  Sex: Male
  Weight: 60 kg

DRUGS (12)
  1. FLUDROCORTISONE [Concomitant]
     Active Substance: FLUDROCORTISONE
  2. TRIPTORELIN/TRIPTORELIN ACETATE/TRIPTORELIN EMBONATE [Concomitant]
  3. FLUTICASONE PROPIONATE/SALMETEROL XINAFOATE [Concomitant]
  4. RIVASTIGMINE/RIVASTIGMINE TARTRATE [Concomitant]
  5. FOLIUMZUUR [Concomitant]
     Active Substance: FOLIC ACID
  6. TRAZODONE [Suspect]
     Active Substance: TRAZODONE HYDROCHLORIDE
     Indication: NEUROPSYCHIATRIC SYMPTOMS
     Dates: start: 201805, end: 20181019
  7. PARACETAMOL [Concomitant]
     Active Substance: ACETAMINOPHEN
  8. PANTOPRAZOLE [Concomitant]
     Active Substance: PANTOPRAZOLE
  9. LIDOCAINE. [Concomitant]
     Active Substance: LIDOCAINE
  10. LORAZEPAM. [Concomitant]
     Active Substance: LORAZEPAM
  11. MOVICOLON [Concomitant]
     Active Substance: POLYETHYLENE GLYCOL 3350\POTASSIUM CHLORIDE\SODIUM BICARBONATE\SODIUM CHLORIDE
  12. CALCICHEW-D3 [Concomitant]
     Active Substance: CALCIUM\CHOLECALCIFEROL

REACTIONS (2)
  - Sepsis [Recovered/Resolved]
  - Pancytopenia [Recovered/Resolved]

NARRATIVE: CASE EVENT DATE: 20181012
